FAERS Safety Report 23824188 (Version 1)
Quarter: 2024Q2

REPORT INFORMATION
  Report Type: Other
  Country: JP (occurrence: None)
  Receive Date: 20240507
  Receipt Date: 20240507
  Transmission Date: 20240716
  Serious: Yes (Other)
  Sender: FDA-Public Use
  Company Number: JP-ROCHE-3557244

PATIENT

DRUGS (3)
  1. RITUXAN [Suspect]
     Active Substance: RITUXIMAB
     Indication: Castleman^s disease
     Route: 041
  2. TOCILIZUMAB [Concomitant]
     Active Substance: TOCILIZUMAB
  3. CYCLOSPORINE [Concomitant]
     Active Substance: CYCLOSPORINE

REACTIONS (6)
  - Abdominal abscess [Unknown]
  - Puncture site haemorrhage [Unknown]
  - Acquired haemophilia [Unknown]
  - Cytomegalovirus infection reactivation [Unknown]
  - Staphylococcal bacteraemia [Unknown]
  - Off label use [Unknown]
